FAERS Safety Report 8868853 (Version 2)
Quarter: 2012Q4

REPORT INFORMATION
  Report Type: 
  Country: US (occurrence: US)
  Receive Date: 20121024
  Receipt Date: 20121102
  Transmission Date: 20130627
  Serious: Yes (Other)
  Sender: FDA-Public Use
  Company Number: US-BAYER-2012-109389

PATIENT
  Age: 55 Year
  Sex: Male
  Weight: 68.03 kg

DRUGS (1)
  1. ALKA-SELTZER PLUS SEVERE SINUS CONGESTION AND COUGH [Suspect]
     Indication: FLU
     Dosage: 2 DF, every 8 hours
     Route: 048
     Dates: start: 201210, end: 201210

REACTIONS (2)
  - Choking [None]
  - Product size issue [None]
